FAERS Safety Report 9216152 (Version 1)
Quarter: 2013Q2

REPORT INFORMATION
  Report Type: Spontaneous
  Country: ES (occurrence: None)
  Receive Date: 20130402
  Receipt Date: 20130402
  Transmission Date: 20140414
  Serious: Yes (Hospitalization, Other)
  Sender: FDA-Public Use
  Company Number: 2013P1003670

PATIENT
  Age: 76 Year
  Sex: Female

DRUGS (4)
  1. ACYCLOVIR [Suspect]
     Indication: INFECTED SKIN ULCER
  2. AMIKACIN [Suspect]
  3. PANTOPRAZOLE [Suspect]
  4. VANCOMYCIN [Suspect]
     Indication: INFECTED SKIN ULCER

REACTIONS (11)
  - Tremor [None]
  - Grand mal convulsion [None]
  - Hypomagnesaemia [None]
  - Muscular weakness [None]
  - Irritability [None]
  - Muscle contracture [None]
  - Pain [None]
  - Inadequate analgesia [None]
  - Nephropathy toxic [None]
  - Neurological symptom [None]
  - General physical health deterioration [None]
